FAERS Safety Report 4564379-2 (Version None)
Quarter: 2005Q1

REPORT INFORMATION
  Report Type: 
  Country: None (occurrence: None)
  Receive Date: 20050128
  Receipt Date: 20050120
  Transmission Date: 20050727
  Serious: Yes (Hospitalization)
  Sender: FDA-Public Use
  Company Number: CN-GLAXOSMITHKLINE-B0365849A

PATIENT
  Age: 4 Year
  Sex: Female

DRUGS (1)
  1. ZENTAL [Suspect]
     Dosage: 2TAB SINGLE DOSE
     Route: 065
     Dates: start: 20050118, end: 20050118

REACTIONS (3)
  - APHASIA [None]
  - PSYCHOTIC DISORDER [None]
  - URINARY INCONTINENCE [None]
